FAERS Safety Report 6314926-5 (Version None)
Quarter: 2009Q3

REPORT INFORMATION
  Report Type: 
  Country: None (occurrence: None)
  Receive Date: 20090819
  Receipt Date: 20090811
  Transmission Date: 20100115
  Serious: Yes (Death, Hospitalization)
  Sender: FDA-Public Use
  Company Number: A0801200A

PATIENT
  Age: 66 Year
  Sex: Male
  Weight: 108 kg

DRUGS (11)
  1. AVANDIA [Suspect]
     Dosage: 8MG PER DAY
     Route: 048
     Dates: start: 20000322, end: 20070701
  2. METFORMIN [Concomitant]
  3. ACCUPRIL [Concomitant]
  4. VIAGRA [Concomitant]
  5. LIPITOR [Concomitant]
  6. TRICOR [Concomitant]
  7. AMARYL [Concomitant]
  8. PENTOXIFYLLINE [Concomitant]
  9. LANTUS [Concomitant]
  10. NIASPAN [Concomitant]
  11. BETAMETHASONE [Concomitant]

REACTIONS (5)
  - ARRHYTHMIA [None]
  - ENDOCARDITIS [None]
  - MULTI-ORGAN FAILURE [None]
  - MYOCARDIAL INFARCTION [None]
  - RESPIRATORY FAILURE [None]
